FAERS Safety Report 5356952-9 (Version None)
Quarter: 2007Q2

REPORT INFORMATION
  Report Type: 
  Country: None (occurrence: None)
  Receive Date: 20070530
  Receipt Date: 20070315
  Transmission Date: 20071010
  Serious: Yes (Other)
  Sender: FDA-Public Use
  Company Number: US200701004357

PATIENT
  Age: 50 Year
  Sex: Male
  Weight: 105.7 kg

DRUGS (5)
  1. ZYPREXA [Suspect]
     Indication: ANXIETY
     Dosage: 5 MG
     Dates: start: 20000223, end: 20000324
  2. ZYPREXA [Suspect]
     Indication: ANXIETY
     Dosage: 5 MG
     Dates: start: 20000511, end: 20000601
  3. ZYPREXA [Suspect]
     Indication: ANXIETY
     Dosage: 5 MG
     Dates: start: 20000706, end: 20030401
  4. CITALOPRAM HYDROBROMIDE [Concomitant]
  5. XANAX [Concomitant]

REACTIONS (5)
  - DIABETES MELLITUS [None]
  - HYPERGLYCAEMIA [None]
  - HYPERTENSION [None]
  - PANCREATITIS [None]
  - WEIGHT INCREASED [None]
